FAERS Safety Report 11719092 (Version 3)
Quarter: 2016Q1

REPORT INFORMATION
  Report Type: Report from Study
  Country: US (occurrence: US)
  Receive Date: 20151110
  Receipt Date: 20160107
  Transmission Date: 20160525
  Serious: Yes (Hospitalization, Other)
  Sender: FDA-Public Use
  Company Number: US-SA-2015SA117408

PATIENT
  Age: 52 Year
  Sex: Female

DRUGS (1)
  1. LEMTRADA [Suspect]
     Active Substance: ALEMTUZUMAB
     Indication: MULTIPLE SCLEROSIS
     Route: 041
     Dates: start: 20150720, end: 20150724

REACTIONS (14)
  - Haemoptysis [Unknown]
  - Ill-defined disorder [Unknown]
  - Headache [Not Recovered/Not Resolved]
  - Acute pulmonary histoplasmosis [Recovered/Resolved]
  - Tremor [Unknown]
  - Decreased immune responsiveness [Unknown]
  - Cerebral fungal infection [Recovered/Resolved]
  - Syncope [Unknown]
  - Malaise [Unknown]
  - Pneumonia [Unknown]
  - Pain [Unknown]
  - Histoplasmosis [Recovered/Resolved]
  - Epistaxis [Unknown]
  - Infection [Unknown]

NARRATIVE: CASE EVENT DATE: 2015
